FAERS Safety Report 7364694-3 (Version None)
Quarter: 2011Q1

REPORT INFORMATION
  Report Type: 
  Country: None (occurrence: None)
  Receive Date: 20110321
  Receipt Date: 20110311
  Transmission Date: 20110831
  Serious: Yes (Hospitalization)
  Sender: FDA-Public Use
  Company Number: US-PERRIGO-11US002240

PATIENT
  Sex: Male
  Weight: 68.481 kg

DRUGS (1)
  1. NICOTINE 2 MG MINT 344 [Suspect]
     Indication: SMOKING CESSATION THERAPY
     Dosage: 6-8 MG, IN 1 HOUR PRN
     Route: 002
     Dates: start: 20110101

REACTIONS (5)
  - ABDOMINAL DISCOMFORT [None]
  - DIARRHOEA [None]
  - CONSTIPATION [None]
  - PNEUMONIA [None]
  - INTENTIONAL OVERDOSE [None]
